FAERS Safety Report 13472632 (Version 1)
Quarter: 2017Q2

REPORT INFORMATION
  Report Type: Spontaneous
  Country: US (occurrence: US)
  Receive Date: 20170423
  Receipt Date: 20170423
  Transmission Date: 20170830
  Serious: No
  Sender: FDA-Public Use
  Company Number: None

PATIENT
  Age: 54 Year
  Sex: Female
  Weight: 56.25 kg

DRUGS (5)
  1. XCLEAR [Concomitant]
  2. ZYRTEC [Suspect]
     Active Substance: CETIRIZINE HYDROCHLORIDE
     Indication: SEASONAL ALLERGY
     Dosage: ?          QUANTITY:1 TABLET(S); AT BEDTIME ORAL?
     Route: 048
     Dates: start: 20170418, end: 20170418
  3. ZYRTEC [Suspect]
     Active Substance: CETIRIZINE HYDROCHLORIDE
     Indication: NASAL CONGESTION
     Dosage: ?          QUANTITY:1 TABLET(S); AT BEDTIME ORAL?
     Route: 048
     Dates: start: 20170418, end: 20170418
  4. ZYRTEC [Suspect]
     Active Substance: CETIRIZINE HYDROCHLORIDE
     Indication: UPPER-AIRWAY COUGH SYNDROME
     Dosage: ?          QUANTITY:1 TABLET(S); AT BEDTIME ORAL?
     Route: 048
     Dates: start: 20170418, end: 20170418
  5. BRAGGS APPLE CIDER VINEGAR [Concomitant]

REACTIONS (5)
  - Insomnia [None]
  - Condition aggravated [None]
  - Mania [None]
  - Panic attack [None]
  - Seasonal allergy [None]
